FAERS Safety Report 11088352 (Version 2)
Quarter: 2015Q2

REPORT INFORMATION
  Report Type: Spontaneous
  Country: US (occurrence: US)
  Receive Date: 20150504
  Receipt Date: 20150623
  Transmission Date: 20150821
  Serious: Yes (Hospitalization, Other)
  Sender: FDA-Public Use
  Company Number: US-ARIAD-2015US004811

PATIENT

DRUGS (3)
  1. ICLUSIG [Suspect]
     Active Substance: PONATINIB
     Indication: ACUTE LYMPHOCYTIC LEUKAEMIA
     Dosage: 45 MG, QD
     Route: 048
     Dates: start: 20150330
  2. POSACONAZOLE [Suspect]
     Active Substance: POSACONAZOLE
     Indication: PRODUCT USED FOR UNKNOWN INDICATION
  3. ICLUSIG [Suspect]
     Active Substance: PONATINIB
     Dosage: 45 MG, QD
     Route: 048

REACTIONS (15)
  - Fibrous histiocytoma [Unknown]
  - Herpes zoster [Unknown]
  - Folliculitis [Unknown]
  - Haemorrhage [Unknown]
  - Complex regional pain syndrome [Unknown]
  - Ventricular hypokinesia [Unknown]
  - Chest pain [Unknown]
  - Ejection fraction decreased [Unknown]
  - Cytopenia [Unknown]
  - Ankle fracture [Unknown]
  - Dyspnoea [Unknown]
  - Cellulitis [Recovered/Resolved]
  - Headache [Recovered/Resolved]
  - Oedema [Recovered/Resolved]
  - Skin papilloma [Not Recovered/Not Resolved]

NARRATIVE: CASE EVENT DATE: 20150408
